FAERS Safety Report 8796242 (Version 1)
Quarter: 2012Q4

REPORT INFORMATION
  Report Type: 
  Country: US (occurrence: US)
  Receive Date: 20120919
  Receipt Date: 20120919
  Transmission Date: 20130627
  Serious: No
  Sender: FDA-Public Use
  Company Number: US-PFIZER INC-2012231428

PATIENT
  Age: 77 Year
  Sex: Female

DRUGS (6)
  1. NICOTROL INHALER [Suspect]
     Indication: CHRONIC OBSTRUCTIVE PULMONARY DISEASE
     Dosage: UNK
  2. CHLORPHENAMINE/HYDROCODONE [Suspect]
     Indication: COUGH
     Dosage: UNK
  3. LEXAPRO [Concomitant]
     Dosage: 20 mg, 1x/day
  4. PREMPRO [Concomitant]
     Dosage: 0.3\1.5 mg, 1x/day
  5. LOSARTAN [Concomitant]
     Dosage: 50 mg, 1x/day
  6. SIMVASTATIN [Concomitant]
     Dosage: 20 mg, 1x/day

REACTIONS (4)
  - Off label use [Unknown]
  - Abnormal behaviour [Unknown]
  - Feeling abnormal [Unknown]
  - Euphoric mood [Unknown]
